FAERS Safety Report 5849893-1 (Version None)
Quarter: 2008Q3

REPORT INFORMATION
  Report Type: 
  Country: None (occurrence: None)
  Receive Date: 20080818
  Receipt Date: 20080818
  Transmission Date: 20090109
  Serious: Yes (Hospitalization)
  Sender: FDA-Public Use
  Company Number: None

PATIENT
  Age: 42 Year
  Sex: Male
  Weight: 74.8435 kg

DRUGS (2)
  1. ENBREL [Suspect]
     Indication: PSORIASIS
     Dosage: 20 MG 2 X WEEKLY SQ
     Route: 058
     Dates: start: 20080121, end: 20080627
  2. CARTIA XT [Concomitant]

REACTIONS (2)
  - IMMUNODEFICIENCY [None]
  - STAPHYLOCOCCAL INFECTION [None]
